FAERS Safety Report 21200301 (Version 1)
Quarter: 2022Q3

REPORT INFORMATION
  Report Type: Spontaneous
  Country: IT (occurrence: IT)
  Receive Date: 20220811
  Receipt Date: 20220811
  Transmission Date: 20221026
  Serious: No
  Sender: FDA-Public Use
  Company Number: IT-JAZZ-2022-IT-018047

PATIENT
  Age: 15 Year
  Sex: Female

DRUGS (2)
  1. VYXEOS [Suspect]
     Active Substance: CYTARABINE\DAUNORUBICIN
     Indication: Product used for unknown indication
     Dosage: 100 INTERNATIONAL UNIT/KILOGRAM
     Dates: start: 20220523
  2. AZACITIDINE [Concomitant]
     Active Substance: AZACITIDINE

REACTIONS (1)
  - Off label use [Unknown]
